FAERS Safety Report 7104934-9 (Version None)
Quarter: 2010Q4

REPORT INFORMATION
  Report Type: 
  Country: None (occurrence: None)
  Receive Date: 20101110
  Receipt Date: 20101028
  Transmission Date: 20110411
  Serious: Yes (Death)
  Sender: FDA-Public Use
  Company Number: 021453

PATIENT
  Age: 39 Year
  Sex: Female

DRUGS (2)
  1. LEVETIRACETAM [Suspect]
  2. OXCARBAZEPINE [Concomitant]

REACTIONS (2)
  - CONVULSION [None]
  - UNRESPONSIVE TO STIMULI [None]
